FAERS Safety Report 24145476 (Version 1)
Quarter: 2024Q3

REPORT INFORMATION
  Report Type: Spontaneous
  Country: US (occurrence: US)
  Receive Date: 20240729
  Receipt Date: 20240729
  Transmission Date: 20241017
  Serious: No
  Sender: AMARIN
  Company Number: US-Amarin Pharma  Inc-2024AMR000250

PATIENT
  Age: 66 Year
  Sex: Female

DRUGS (2)
  1. VASCEPA [Suspect]
     Active Substance: ICOSAPENT ETHYL
     Indication: Blood cholesterol increased
     Dosage: 2 IN AM AND 2 IN PM
  2. LYRICA [Concomitant]
     Active Substance: PREGABALIN
     Indication: Neuropathy peripheral

REACTIONS (10)
  - Post-traumatic stress disorder [Unknown]
  - Anxiety [Unknown]
  - Mental disorder [Unknown]
  - Eating disorder [Unknown]
  - Pruritus [Unknown]
  - Skin exfoliation [Not Recovered/Not Resolved]
  - Poor quality product administered [Unknown]
  - Suspected product contamination [Unknown]
  - Product colour issue [Unknown]
  - Product physical issue [Unknown]
